FAERS Safety Report 15412512 (Version 1)
Quarter: 2018Q3

REPORT INFORMATION
  Report Type: Spontaneous
  Country: US (occurrence: US)
  Receive Date: 20180921
  Receipt Date: 20180921
  Transmission Date: 20181010
  Serious: No
  Sender: FDA-Public Use
  Company Number: US-TEVA-2018-US-955674

PATIENT
  Sex: Female

DRUGS (1)
  1. NICOTINE POLACRILEX [Suspect]
     Active Substance: NICOTINE
     Indication: SMOKING CESSATION THERAPY
     Dosage: GUM, DOSE STRENGTH: 2
     Route: 065
     Dates: start: 20180914

REACTIONS (2)
  - Dizziness [Unknown]
  - Burning sensation [Unknown]

NARRATIVE: CASE EVENT DATE: 20180914
